FAERS Safety Report 6182484-4 (Version None)
Quarter: 2009Q2

REPORT INFORMATION
  Report Type: 
  Country: None (occurrence: None)
  Receive Date: 20090507
  Receipt Date: 20090427
  Transmission Date: 20091009
  Serious: Yes (Death)
  Sender: FDA-Public Use
  Company Number: NO-ROCHE-630478

PATIENT
  Age: 78 Year
  Sex: Male

DRUGS (5)
  1. ALL-TRANS-RETINOIC ACID [Suspect]
     Dosage: ADMINISTERED FOR FIRST 14 DAYS AND REPEATED EVERY THIRD MONTH
     Route: 048
  2. VALPROIC ACID [Suspect]
     Dosage: CONTINOUS INTRAVENOUS INFUSIONS ON DAY 3
     Route: 042
  3. VALPROIC ACID [Suspect]
     Dosage: GRADUALLY INCREASED UNTIL SIDE-EFFECTS APPEARED
     Route: 048
  4. THEOPHYLLINE [Suspect]
     Dosage: CONTINOUS INTRAVENOUS INFUSION ON DAY 3
     Route: 042
  5. THEOPHYLLINE [Suspect]
     Route: 048

REACTIONS (1)
  - MALIGNANT NEOPLASM PROGRESSION [None]
